FAERS Safety Report 22295107 (Version 1)
Quarter: 2023Q2

REPORT INFORMATION
  Report Type: Spontaneous
  Country: DE (occurrence: DE)
  Receive Date: 20230508
  Receipt Date: 20230508
  Transmission Date: 20230721
  Serious: Yes (Hospitalization)
  Sender: FDA-Public Use
  Company Number: None

PATIENT
  Age: 68 Year
  Sex: Male
  Weight: 100 kg

DRUGS (12)
  1. DIAZEPAM [Suspect]
     Active Substance: DIAZEPAM
     Indication: Sleep disorder
     Dosage: 10 MG ON 04/10/2023
     Route: 065
     Dates: start: 2018
  2. DIAZEPAM [Suspect]
     Active Substance: DIAZEPAM
     Indication: Restlessness
  3. ZOLPIDEM [Suspect]
     Active Substance: ZOLPIDEM TARTRATE
     Indication: Initial insomnia
     Dosage: 50-60 MG ON 04/10/2023
     Route: 065
     Dates: start: 2019
  4. ZOLPIDEM [Suspect]
     Active Substance: ZOLPIDEM TARTRATE
     Indication: Middle insomnia
  5. PANTOPRAZOLE SODIUM [Concomitant]
     Active Substance: PANTOPRAZOLE SODIUM
     Indication: Abdominal discomfort
     Dosage: 40 MILLIGRAM DAILY; 1-0-0
     Route: 065
     Dates: start: 2020
  6. FALITHROM [Concomitant]
     Active Substance: PHENPROCOUMON
     Indication: Mitral valve replacement
     Dosage: BY INR
     Route: 065
     Dates: start: 2017
  7. FALITHROM [Concomitant]
     Active Substance: PHENPROCOUMON
     Indication: Aortic valve replacement
  8. FALITHROM [Concomitant]
     Active Substance: PHENPROCOUMON
     Indication: Atrial fibrillation
  9. ALLOPURINOL AL 100 [Concomitant]
     Indication: Hyperuricaemia
     Dosage: 100 MILLIGRAM DAILY; 1-0-0
     Route: 065
     Dates: start: 2018
  10. CANDESARTAN CILEXETIL [Concomitant]
     Active Substance: CANDESARTAN CILEXETIL
     Indication: Hypertension
     Dosage: 8 MILLIGRAM DAILY; 1-0-0
     Route: 065
     Dates: start: 20220223
  11. TORSEMIDE [Concomitant]
     Active Substance: TORSEMIDE
     Indication: Hypertension
     Dosage: 10 MILLIGRAM DAILY; 1-0-0
     Route: 065
     Dates: start: 2022
  12. ALFACALCIDOL [Concomitant]
     Active Substance: ALFACALCIDOL
     Indication: Product used for unknown indication
     Dosage: MON+FRI 1EQ
     Route: 065
     Dates: start: 2021

REACTIONS (9)
  - Contusion [Not Recovered/Not Resolved]
  - Immobile [Not Recovered/Not Resolved]
  - Somnolence [Not Recovered/Not Resolved]
  - Haematoma [Not Recovered/Not Resolved]
  - Dizziness [Not Recovered/Not Resolved]
  - Drug ineffective [Not Recovered/Not Resolved]
  - Fall [Not Recovered/Not Resolved]
  - Intentional product misuse [Unknown]
  - Intentional overdose [Unknown]

NARRATIVE: CASE EVENT DATE: 20230410
